FAERS Safety Report 20224377 (Version 3)
Quarter: 2022Q1

REPORT INFORMATION
  Report Type: Report from Study
  Country: US (occurrence: US)
  Receive Date: 20211223
  Receipt Date: 20220208
  Transmission Date: 20220423
  Serious: Yes (Other)
  Sender: FDA-Public Use
  Company Number: US-NOVARTISTESTPH-NVSC2021US292549

PATIENT
  Age: 87 Year
  Sex: Female
  Weight: 54.4 kg

DRUGS (4)
  1. KISQALI [Suspect]
     Active Substance: RIBOCICLIB
     Indication: Breast cancer
     Dosage: 600 MG, QD
     Route: 048
     Dates: start: 20211103, end: 20211124
  2. KISQALI [Suspect]
     Active Substance: RIBOCICLIB
     Dosage: 400 MG, QD
     Route: 048
     Dates: start: 20220118
  3. KISQALI [Suspect]
     Active Substance: RIBOCICLIB
     Dosage: UNK
     Route: 065
  4. KISQALI [Suspect]
     Active Substance: RIBOCICLIB
     Dosage: 400 MG, QD (FOR 3 WEEK IN ALL 1 WEEK)
     Route: 065
     Dates: start: 20211217

REACTIONS (3)
  - Neutropenia [Recovered/Resolved]
  - Dry skin [Not Recovered/Not Resolved]
  - Red blood cell count increased [Unknown]

NARRATIVE: CASE EVENT DATE: 20211129
